FAERS Safety Report 6102099-3 (Version None)
Quarter: 2009Q1

REPORT INFORMATION
  Report Type: 
  Country: None (occurrence: None)
  Receive Date: 20090304
  Receipt Date: 20090218
  Transmission Date: 20090719
  Serious: Yes (Hospitalization)
  Sender: FDA-Public Use
  Company Number: US-PFIZER INC-2005100050

PATIENT
  Sex: Female
  Weight: 57.38 kg

DRUGS (13)
  1. BLINDED *PLACEBO [Suspect]
     Indication: HIV INFECTION
     Dosage: UNK
     Route: 048
  2. BLINDED MARAVIROC [Suspect]
     Indication: HIV INFECTION
     Dosage: UNK
     Route: 048
  3. VIDEX [Concomitant]
     Route: 048
     Dates: start: 20030311, end: 20050710
  4. ZIAGEN [Concomitant]
     Route: 048
     Dates: start: 20050517, end: 20050710
  5. EPIVIR [Concomitant]
     Route: 048
     Dates: start: 20030311, end: 20050710
  6. VIREAD [Concomitant]
     Route: 048
     Dates: start: 20030311, end: 20050710
  7. FUZEON [Concomitant]
     Route: 058
     Dates: start: 20050517, end: 20050706
  8. ALBUTEROL [Concomitant]
     Indication: ASTHMA
     Route: 055
     Dates: start: 19890101
  9. NEUPOGEN [Concomitant]
     Indication: NEUTROPENIA
     Route: 058
     Dates: start: 20050418
  10. DIFLUCAN [Concomitant]
     Route: 048
     Dates: start: 20050325
  11. DIPHENHYDRAMINE HCL [Concomitant]
     Indication: SEASONAL ALLERGY
     Route: 048
     Dates: start: 20040415
  12. ZITHROMAX [Concomitant]
     Route: 048
     Dates: start: 20050503
  13. ZYRTEC [Concomitant]
     Indication: SEASONAL ALLERGY
     Route: 048
     Dates: start: 20050510

REACTIONS (2)
  - MOVEMENT DISORDER [None]
  - PAIN [None]
